FAERS Safety Report 10098643 (Version 1)
Quarter: 2014Q2

REPORT INFORMATION
  Report Type: Spontaneous
  Country: US (occurrence: US)
  Receive Date: 20140423
  Receipt Date: 20140423
  Transmission Date: 20141212
  Serious: Yes (Other)
  Sender: FDA-Public Use
  Company Number: US-ASTRAZENECA-2014SE26486

PATIENT
  Age: 74 Year
  Sex: Female
  Weight: 72.1 kg

DRUGS (9)
  1. SYMBICORT [Suspect]
     Indication: DYSPNOEA
     Dosage: 160/4.5 , 2 PUFFS BID
     Route: 055
     Dates: start: 201306
  2. LISINOPRIL [Suspect]
     Indication: BLOOD PRESSURE ABNORMAL
     Route: 048
     Dates: start: 2008
  3. METROPOLOL TARTRATE [Suspect]
     Indication: CARDIAC DISORDER
     Route: 048
  4. ALLEGRA [Concomitant]
     Indication: HYPERSENSITIVITY
     Dosage: UNK DAILY
  5. ASPIRIN [Concomitant]
     Indication: CARDIAC DISORDER
  6. GENERIC ZANTAC [Concomitant]
  7. SERTRALINE [Concomitant]
     Indication: DEPRESSION
  8. MUTIVITAMINS [Concomitant]
  9. INHALER [Concomitant]
     Dosage: PRN

REACTIONS (15)
  - Sinus disorder [Unknown]
  - Myocardial infarction [Unknown]
  - Paraesthesia [Not Recovered/Not Resolved]
  - Ear disorder [Unknown]
  - Upper respiratory tract infection [Unknown]
  - Fatigue [Unknown]
  - Dry throat [Unknown]
  - Throat irritation [Unknown]
  - Angioedema [Unknown]
  - Headache [Unknown]
  - Rash [Recovered/Resolved]
  - Oral candidiasis [Not Recovered/Not Resolved]
  - Dysphonia [Not Recovered/Not Resolved]
  - Drug effect incomplete [Unknown]
  - Off label use [Unknown]
